FAERS Safety Report 8806939 (Version 1)
Quarter: 2012Q4

REPORT INFORMATION
  Report Type: 
  Country: TR (occurrence: TR)
  Receive Date: 20120925
  Receipt Date: 20120925
  Transmission Date: 20130627
  Serious: Yes (Other)
  Sender: FDA-Public Use
  Company Number: TR-PFIZER INC-2012237358

PATIENT

DRUGS (1)
  1. PREGABALIN [Suspect]

REACTIONS (2)
  - Dementia [Recovering/Resolving]
  - Hallucination [Recovering/Resolving]
